FAERS Safety Report 7783104-5 (Version None)
Quarter: 2011Q3

REPORT INFORMATION
  Report Type: 
  Country: None (occurrence: None)
  Receive Date: 20110928
  Receipt Date: 20110921
  Transmission Date: 20111222
  Serious: Yes (Hospitalization, Other)
  Sender: FDA-Public Use
  Company Number: US-B.I. PHARMACEUTICALS,INC./RIDGEFIELD-2011-BP-20713BP

PATIENT
  Age: 67 Year
  Sex: Male

DRUGS (5)
  1. PRADAXA [Suspect]
     Indication: ATRIAL FIBRILLATION
     Dosage: 300 MG
     Dates: end: 20110731
  2. PRADAXA [Suspect]
     Dosage: 300 MG
     Dates: start: 20110806, end: 20110824
  3. CRESTOR [Concomitant]
     Dosage: 10 MG
  4. NEXIUM [Concomitant]
     Dosage: 40 MG
     Dates: start: 20110802
  5. DRONEDARONE HCL [Concomitant]
     Dosage: 800 MG
     Dates: start: 20110803, end: 20110823

REACTIONS (1)
  - PULMONARY EMBOLISM [None]
